FAERS Safety Report 16840180 (Version 1)
Quarter: 2019Q3

REPORT INFORMATION
  Report Type: Spontaneous
  Country: ES (occurrence: ES)
  Receive Date: 20190923
  Receipt Date: 20190923
  Transmission Date: 20191005
  Serious: Yes (Other)
  Sender: FDA-Public Use
  Company Number: ES-JNJFOC-20190928362

PATIENT
  Age: 58 Year
  Sex: Male

DRUGS (5)
  1. NATECAL D [Concomitant]
     Active Substance: CALCIUM CARBONATE\CHOLECALCIFEROL
     Route: 048
     Dates: start: 20170905
  2. PREDNISONA PENSA [Concomitant]
     Route: 065
     Dates: start: 20170815
  3. SIMPONI [Suspect]
     Active Substance: GOLIMUMAB
     Indication: PSORIATIC ARTHROPATHY
     Route: 058
     Dates: start: 20170616, end: 20190708
  4. DOLQUINE [Concomitant]
     Active Substance: HYDROXYCHLOROQUINE SULFATE
     Indication: PSORIATIC ARTHROPATHY
     Route: 048
     Dates: start: 20160906
  5. SYRON [Concomitant]
     Route: 048
     Dates: start: 20170808

REACTIONS (1)
  - Hepatocellular carcinoma [Recovering/Resolving]

NARRATIVE: CASE EVENT DATE: 20190705
